FAERS Safety Report 7967804-X (Version None)
Quarter: 2011Q4

REPORT INFORMATION
  Report Type: 
  Country: None (occurrence: None)
  Receive Date: 20111209
  Receipt Date: 20111205
  Transmission Date: 20120403
  Serious: Yes (Disabling, Other)
  Sender: FDA-Public Use
  Company Number: US-PFIZER INC-2006004171

PATIENT
  Sex: Female

DRUGS (1)
  1. ZITHROMAX [Suspect]
     Indication: INFECTION
     Dosage: UNK
     Dates: start: 20060102

REACTIONS (3)
  - DEAFNESS [None]
  - NERVOUS SYSTEM DISORDER [None]
  - HEARING IMPAIRED [None]
